FAERS Safety Report 9822890 (Version 2)
Quarter: 2014Q1

REPORT INFORMATION
  Report Type: Spontaneous
  Country: US (occurrence: US)
  Receive Date: 20140116
  Receipt Date: 20140116
  Transmission Date: 20141002
  Serious: No
  Sender: FDA-Public Use
  Company Number: US-GILEAD-2010-0033074

PATIENT
  Age: 70 Year
  Sex: Female

DRUGS (11)
  1. LETAIRIS [Suspect]
     Indication: PULMONARY ARTERIAL HYPERTENSION
     Route: 048
     Dates: start: 20100923, end: 20101014
  2. CARVEDILOL [Concomitant]
  3. BETAPACE [Concomitant]
  4. COUMADIN [Concomitant]
  5. LASIX [Concomitant]
  6. CRESTOR [Concomitant]
  7. GLUCOTROL [Concomitant]
  8. LEVOTHYROXINE [Concomitant]
  9. PERCOCET [Concomitant]
  10. XANAX [Concomitant]
  11. KLOR-CON [Concomitant]

REACTIONS (5)
  - Fatigue [Recovered/Resolved]
  - Decreased appetite [Recovered/Resolved]
  - Asthenia [Recovered/Resolved]
  - Dyspnoea [Recovered/Resolved]
  - Nausea [Recovered/Resolved]
